FAERS Safety Report 5499805-8 (Version None)
Quarter: 2007Q4

REPORT INFORMATION
  Report Type: 
  Country: None (occurrence: None)
  Receive Date: 20071026
  Receipt Date: 20071016
  Transmission Date: 20080405
  Serious: Yes (Other)
  Sender: FDA-Public Use
  Company Number: US-PFIZER INC-2007077549

PATIENT
  Sex: Female

DRUGS (2)
  1. VFEND [Suspect]
     Indication: LUNG INFECTION
     Dates: start: 20070719, end: 20070911
  2. MORPHINE [Concomitant]
     Indication: BACK DISORDER
     Dosage: TEXT:1 PILL-FREQ:EVERY DAY

REACTIONS (4)
  - OPTIC NEURITIS [None]
  - OSTEOMYELITIS [None]
  - TRANSPLANT [None]
  - VISION BLURRED [None]
